FAERS Safety Report 18771111 (Version 2)
Quarter: 2021Q1

REPORT INFORMATION
  Report Type: Report from Study
  Country: PA (occurrence: PA)
  Receive Date: 20210121
  Receipt Date: 20210301
  Transmission Date: 20210419
  Serious: Yes (Life-Threatening, Other)
  Sender: FDA-Public Use
  Company Number: NVSC2020PA339355

PATIENT
  Sex: Female

DRUGS (1)
  1. GILENYA [Suspect]
     Active Substance: FINGOLIMOD HYDROCHLORIDE
     Indication: MULTIPLE SCLEROSIS
     Dosage: 0.5 MG, QD
     Route: 048
     Dates: start: 20200930

REACTIONS (22)
  - Dyspnoea [Unknown]
  - Malaise [Unknown]
  - Throat irritation [Recovered/Resolved with Sequelae]
  - Abdominal discomfort [Unknown]
  - Chest pain [Unknown]
  - Cough [Recovered/Resolved with Sequelae]
  - Capillary fragility [Unknown]
  - COVID-19 [Unknown]
  - Food intolerance [Unknown]
  - Hypoaesthesia [Unknown]
  - Headache [Recovered/Resolved with Sequelae]
  - COVID-19 [Recovered/Resolved with Sequelae]
  - Flatulence [Unknown]
  - Gastric disorder [Unknown]
  - Tachycardia [Unknown]
  - Presyncope [Unknown]
  - Back pain [Recovered/Resolved with Sequelae]
  - Abdominal pain upper [Not Recovered/Not Resolved]
  - Product dose omission issue [Unknown]
  - Anxiety [Unknown]
  - Pyrexia [Recovered/Resolved with Sequelae]
  - Palpitations [Unknown]
